FAERS Safety Report 4391144-1 (Version None)
Quarter: 2004Q3

REPORT INFORMATION
  Report Type: 
  Country: None (occurrence: None)
  Receive Date: 20040707
  Receipt Date: 20040628
  Transmission Date: 20050211
  Serious: Yes (Hospitalization, Other)
  Sender: FDA-Public Use
  Company Number: DE-BRISTOL-MYERS SQUIBB COMPANY-12626628

PATIENT
  Age: 58 Year
  Sex: Female
  Weight: 62 kg

DRUGS (2)
  1. CARBOPLATIN [Suspect]
     Indication: PERITONEAL CARCINOMA
     Route: 042
     Dates: start: 20040517, end: 20040517
  2. CAELYX [Suspect]
     Indication: PERITONEAL CARCINOMA
     Route: 042
     Dates: start: 20040517, end: 20040517

REACTIONS (2)
  - ANAEMIA [None]
  - SUBILEUS [None]
